FAERS Safety Report 5928385-5 (Version None)
Quarter: 2008Q4

REPORT INFORMATION
  Report Type: 
  Country: None (occurrence: None)
  Receive Date: 20081023
  Receipt Date: 20081016
  Transmission Date: 20090506
  Serious: Yes (Disabling)
  Sender: FDA-Public Use
  Company Number: PHHO2008DE12439

PATIENT
  Sex: Male
  Weight: 180 kg

DRUGS (6)
  1. ZOLEDRONATE T29581+SOLINJ+BM [Suspect]
     Indication: METASTASES TO BONE
     Dosage: 4MG EVERY 3 MONTHS
     Route: 042
     Dates: start: 20050713, end: 20080619
  2. CALCIUM [Concomitant]
  3. VITAMIN D [Concomitant]
  4. CYMBALTA [Concomitant]
     Indication: DEPRESSION
  5. ELIGARD [Concomitant]
     Indication: PROSTATE CANCER
  6. ASPIRIN [Concomitant]
     Indication: PROPHYLAXIS

REACTIONS (1)
  - OSTEONECROSIS [None]
